FAERS Safety Report 22181485 (Version 1)
Quarter: 2023Q2

REPORT INFORMATION
  Report Type: Spontaneous
  Country: US (occurrence: US)
  Receive Date: 20230406
  Receipt Date: 20230406
  Transmission Date: 20230722
  Serious: No
  Sender: FDA-Public Use
  Company Number: US-AMRYT PHARMACEUTICALS DAC-AEGR006196

PATIENT
  Sex: Female

DRUGS (2)
  1. MYCAPSSA [Suspect]
     Active Substance: OCTREOTIDE
     Indication: Acromegaly
     Dosage: UNK
     Route: 048
     Dates: start: 202210
  2. MYCAPSSA [Suspect]
     Active Substance: OCTREOTIDE
     Dosage: 40 MILLIGRAM, BID
     Route: 048
     Dates: start: 20221201

REACTIONS (2)
  - Blood growth hormone increased [Not Recovered/Not Resolved]
  - Drug ineffective [Unknown]

NARRATIVE: CASE EVENT DATE: 20221201
